FAERS Safety Report 21453045 (Version 1)
Quarter: 2022Q4

REPORT INFORMATION
  Report Type: Other
  Country: CN (occurrence: None)
  Receive Date: 20221013
  Receipt Date: 20221013
  Transmission Date: 20230112
  Serious: Yes (Other)
  Sender: FDA-Public Use
  Company Number: CN-ROCHE-3196866

PATIENT
  Age: 74 Year
  Sex: Male

DRUGS (10)
  1. TRASTUZUMAB [Suspect]
     Active Substance: TRASTUZUMAB
     Indication: Oesophageal carcinoma
     Route: 065
  2. TRASTUZUMAB [Suspect]
     Active Substance: TRASTUZUMAB
     Route: 065
  3. PEMBROLIZUMAB [Concomitant]
     Active Substance: PEMBROLIZUMAB
  4. OXALIPLATIN [Concomitant]
     Active Substance: OXALIPLATIN
  5. ELTROMBOPAG [Concomitant]
     Active Substance: ELTROMBOPAG
  6. CYCLOSPORINE [Concomitant]
     Active Substance: CYCLOSPORINE
  7. TESTOSTERONE [Concomitant]
     Active Substance: TESTOSTERONE
  8. PREDNISONE [Concomitant]
     Active Substance: PREDNISONE
  9. METHYLPREDNISOLONE [Concomitant]
     Active Substance: METHYLPREDNISOLONE
     Route: 042
  10. THROMBOPOIETIN [Concomitant]
     Active Substance: THROMBOPOIETIN

REACTIONS (2)
  - Metastases to central nervous system [Unknown]
  - Disease progression [Unknown]
